FAERS Safety Report 5015407-1 (Version None)
Quarter: 2006Q2

REPORT INFORMATION
  Report Type: 
  Country: None (occurrence: None)
  Receive Date: 20060530
  Receipt Date: 20060530
  Transmission Date: 20061013
  Serious: Yes (Other)
  Sender: FDA-Public Use
  Company Number: None

PATIENT
  Age: 50 Year
  Sex: Male
  Weight: 98.9 kg

DRUGS (11)
  1. IBUPROFEN [Suspect]
  2. OMEPRAZOLE [Concomitant]
  3. ALLOPURINOL [Concomitant]
  4. AMITRIPTYLINE HCL [Concomitant]
  5. ISOSORBIDE MONONITRATE [Concomitant]
  6. TRAMADOL HCL [Concomitant]
  7. ACETAMINOPHEN [Concomitant]
  8. BUPROPION HCL [Concomitant]
  9. GEMFIBROZIL [Concomitant]
  10. METOPROLOL TARTRATE [Concomitant]
  11. ASPIRIN [Concomitant]

REACTIONS (1)
  - LARGE INTESTINAL ULCER [None]
